FAERS Safety Report 7981872-0 (Version None)
Quarter: 2011Q4

REPORT INFORMATION
  Report Type: 
  Country: None (occurrence: None)
  Receive Date: 20111215
  Receipt Date: 20111205
  Transmission Date: 20120403
  Serious: Yes (Hospitalization)
  Sender: FDA-Public Use
  Company Number: US-MYLANLABS-2011S1023762

PATIENT
  Age: 35 Year
  Sex: Male
  Weight: 88.6 kg

DRUGS (1)
  1. FENTANYL-100 [Suspect]
     Route: 048
     Dates: start: 20111116, end: 20111116

REACTIONS (4)
  - INTENTIONAL DRUG MISUSE [None]
  - CHILLS [None]
  - INCORRECT ROUTE OF DRUG ADMINISTRATION [None]
  - PYREXIA [None]
